FAERS Safety Report 5471765-5 (Version None)
Quarter: 2007Q3

REPORT INFORMATION
  Report Type: 
  Country: None (occurrence: None)
  Receive Date: 20070928
  Receipt Date: 20070511
  Transmission Date: 20080115
  Serious: No
  Sender: FDA-Public Use
  Company Number: US-BRISTOL-MYERS SQUIBB COMPANY-13777487

PATIENT
  Age: 75 Year
  Sex: Male
  Weight: 86 kg

DRUGS (7)
  1. DEFINITY [Suspect]
     Indication: CARDIAC STRESS TEST
     Dates: start: 20070511, end: 20070511
  2. PLAVIX [Concomitant]
  3. LISINOPRIL [Concomitant]
  4. ZETIA [Concomitant]
  5. ASMANEX TWISTHALER [Concomitant]
  6. COMBIVENT [Concomitant]
  7. ASPIRIN [Concomitant]

REACTIONS (3)
  - ABDOMINAL PAIN [None]
  - BLOOD PRESSURE DECREASED [None]
  - HEART RATE DECREASED [None]
